FAERS Safety Report 6563061 (Version 5)
Quarter: 2014Q4

REPORT INFORMATION
  Report Type: Spontaneous
  Country: JP (occurrence: JP)
  Receive Date: 20080227
  Receipt Date: 20141104
  Transmission Date: 20150529
  Serious: Yes (Disabling, Other)
  Sender: FDA-Public Use
  Company Number: PHHY2008JP01912

PATIENT
  Age: 69 Year
  Sex: Female
  Weight: 162 kg

DRUGS (5)
  1. ZOMETA [Suspect]
     Active Substance: ZOLEDRONIC ACID
     Dosage: 4 MG, EVERY FOUR WEEKS
     Route: 042
     Dates: start: 200607
  2. BISPHOSPHONATES [Concomitant]
     Active Substance: UNSPECIFIED INGREDIENT
     Indication: METASTASES TO PELVIS
     Route: 065
     Dates: start: 200303
  3. ZOMETA [Suspect]
     Active Substance: ZOLEDRONIC ACID
     Indication: METASTASES TO BONE
     Dosage: 4 MG, QMO
     Route: 042
     Dates: end: 20061113
  4. AREDIA [Suspect]
     Active Substance: PAMIDRONATE DISODIUM
     Indication: METASTASES TO BONE
     Dosage: 90 MG, QD
     Route: 042
     Dates: start: 20040101
  5. AREDIA [Suspect]
     Active Substance: PAMIDRONATE DISODIUM
     Dosage: 90 MG, QMO
     Route: 042
     Dates: start: 200501, end: 200607

REACTIONS (15)
  - Pain in jaw [Recovering/Resolving]
  - Brain oedema [Unknown]
  - Malignant neoplasm progression [Unknown]
  - Exposed bone in jaw [Unknown]
  - Haemorrhage [Recovering/Resolving]
  - Trismus [Unknown]
  - Osteonecrosis of jaw [Not Recovered/Not Resolved]
  - Osteomyelitis [Not Recovered/Not Resolved]
  - Palatal swelling [Unknown]
  - Oral pain [Unknown]
  - Alveolar osteitis [Recovered/Resolved]
  - Gingival swelling [Recovered/Resolved]
  - Oedema mucosal [Unknown]
  - Breast cancer [Unknown]
  - C-reactive protein increased [Unknown]

NARRATIVE: CASE EVENT DATE: 200509
